FAERS Safety Report 8296805-X (Version None)
Quarter: 2012Q2

REPORT INFORMATION
  Report Type: 
  Country: None (occurrence: None)
  Receive Date: 20120419
  Receipt Date: 20120307
  Transmission Date: 20120825
  Serious: No
  Sender: FDA-Public Use
  Company Number: US-ASTRAZENECA-2011SE45681

PATIENT
  Age: 45 Year
  Sex: Male
  Weight: 99.8 kg

DRUGS (13)
  1. FERROUS SULFATE TAB [Concomitant]
     Dates: start: 20070118
  2. NEXIUM [Suspect]
     Dosage: BID
     Route: 048
     Dates: start: 20070101, end: 20070920
  3. MEDROL [Concomitant]
     Dates: start: 20060901
  4. PERCOCET [Concomitant]
     Indication: PAIN
     Dosage: 5/325 1 BID PRN
     Dates: start: 20070709
  5. NEURONTIN [Concomitant]
  6. FERROUS SULFATE TAB [Concomitant]
     Dates: start: 20070129
  7. OXYCONTIN [Concomitant]
  8. TORADOL [Concomitant]
     Dates: start: 20060901
  9. NEXIUM [Suspect]
     Route: 048
     Dates: start: 20070118
  10. METHOCARBAMOL [Concomitant]
  11. NEXIUM [Suspect]
     Indication: EROSIVE OESOPHAGITIS
     Route: 048
     Dates: start: 20070101
  12. NEXIUM [Suspect]
     Route: 048
     Dates: start: 20070129
  13. MAGNESIUM OXIDE [Concomitant]
     Route: 048
     Dates: start: 20070118

REACTIONS (8)
  - RIB FRACTURE [None]
  - BONE DISORDER [None]
  - THORACIC VERTEBRAL FRACTURE [None]
  - OSTEOPOROSIS [None]
  - SPINAL COMPRESSION FRACTURE [None]
  - PATHOLOGICAL FRACTURE [None]
  - SPINAL FRACTURE [None]
  - FRACTURE [None]
